FAERS Safety Report 7773031-1 (Version None)
Quarter: 2011Q3

REPORT INFORMATION
  Report Type: 
  Country: None (occurrence: None)
  Receive Date: 20110922
  Receipt Date: 20090904
  Transmission Date: 20111222
  Serious: No
  Sender: FDA-Public Use
  Company Number: US-ASTRAZENECA-2009SE11605

PATIENT
  Age: 55 Year
  Sex: Male
  Weight: 72.6 kg

DRUGS (3)
  1. CLONOPIN [Concomitant]
  2. SEROQUEL [Suspect]
     Indication: BIPOLAR I DISORDER
     Route: 048
     Dates: start: 20080301, end: 20080701
  3. ATIVAN [Concomitant]

REACTIONS (3)
  - TARDIVE DYSKINESIA [None]
  - RESTLESS LEGS SYNDROME [None]
  - LOSS OF DREAMING [None]
